FAERS Safety Report 19696609 (Version 1)
Quarter: 2021Q3

REPORT INFORMATION
  Report Type: Spontaneous
  Country: US (occurrence: US)
  Receive Date: 20210813
  Receipt Date: 20210813
  Transmission Date: 20211014
  Serious: No
  Sender: FDA-Public Use
  Company Number: None

PATIENT
  Age: 57 Year
  Sex: Female

DRUGS (19)
  1. VENTOLIN HFA [Concomitant]
     Active Substance: ALBUTEROL SULFATE
  2. ADCIRCA [Concomitant]
     Active Substance: TADALAFIL
  3. PLAQUENIL [Concomitant]
     Active Substance: HYDROXYCHLOROQUINE SULFATE
  4. REVLIMID [Concomitant]
     Active Substance: LENALIDOMIDE
  5. FUROSEMIDE. [Concomitant]
     Active Substance: FUROSEMIDE
  6. LORATADINE. [Concomitant]
     Active Substance: LORATADINE
  7. OMEPRAZOLE. [Concomitant]
     Active Substance: OMEPRAZOLE
  8. VITAMIN D2 [Concomitant]
     Active Substance: ERGOCALCIFEROL
  9. SYMBICORT [Concomitant]
     Active Substance: BUDESONIDE\FORMOTEROL FUMARATE DIHYDRATE
  10. PREDNISONE. [Concomitant]
     Active Substance: PREDNISONE
  11. ALBUTEROL. [Concomitant]
     Active Substance: ALBUTEROL
  12. TADALAFIL. [Suspect]
     Active Substance: TADALAFIL
  13. AMBRISENTAN [Suspect]
     Active Substance: AMBRISENTAN
     Route: 048
  14. ASPIR?81 [Concomitant]
     Active Substance: ASPIRIN
  15. KLOR?CON M10 [Concomitant]
     Active Substance: POTASSIUM CHLORIDE
  16. VITAMIN D3 [Concomitant]
     Active Substance: CHOLECALCIFEROL
  17. MAGNESIUM [Concomitant]
     Active Substance: MAGNESIUM
  18. GABAPENTIN. [Concomitant]
     Active Substance: GABAPENTIN
  19. TURMERIC [Concomitant]
     Active Substance: HERBALS\TURMERIC

REACTIONS (1)
  - Myelodysplastic syndrome [None]

NARRATIVE: CASE EVENT DATE: 20210812
